FAERS Safety Report 8888586 (Version 1)
Quarter: 2012Q4

REPORT INFORMATION
  Report Type: Report from Study
  Country: US (occurrence: US)
  Receive Date: 20121106
  Receipt Date: 20121106
  Transmission Date: 20130627
  Serious: Yes (Hospitalization)
  Sender: FDA-Public Use
  Company Number: US-VERTEX PHARMACEUTICAL INC.-2012-024057

PATIENT
  Sex: Male

DRUGS (5)
  1. VX-950 [Suspect]
     Indication: HEPATITIS C
     Dosage: 375 mg, UNK
     Route: 048
  2. PEGASYS [Suspect]
     Indication: HEPATITIS C
     Dosage: 180 ?g/kg, UNK
     Route: 058
  3. RIBAVIRIN [Suspect]
     Indication: HEPATITIS C
     Dosage: 200 mg, UNK
     Route: 048
  4. HYDROCHLOROTH [Concomitant]
     Dosage: 12.5 mg, UNK
  5. XANAX [Concomitant]
     Dosage: 0.25 mg, UNK

REACTIONS (2)
  - Convulsion [Unknown]
  - Amnesia [Unknown]
